FAERS Safety Report 5846262-5 (Version None)
Quarter: 2008Q3

REPORT INFORMATION
  Report Type: 
  Country: None (occurrence: None)
  Receive Date: 20080813
  Receipt Date: 20080801
  Transmission Date: 20090109
  Serious: Yes (Hospitalization, Other)
  Sender: FDA-Public Use
  Company Number: 08-001266

PATIENT
  Age: 72 Year
  Sex: Male

DRUGS (6)
  1. PYRIDIUM       (PHENAZOPYRIDINE HYDROCHLORIDE) [Suspect]
     Indication: DYSPNOEA
     Dosage: 200MG, TID, ORAL
     Route: 048
     Dates: end: 19860301
  2. SALBUTAMOL (SALBUTAMOL) [Concomitant]
  3. FERROUS SULPHATE (FERROUS SULFATE) [Concomitant]
  4. MIANSERIN (MIANSERIN) [Concomitant]
  5. THEOPHYLLINE [Concomitant]
  6. PREDNISONE [Concomitant]

REACTIONS (11)
  - BLOOD POTASSIUM DECREASED [None]
  - CHRONIC OBSTRUCTIVE PULMONARY DISEASE [None]
  - CONDITION AGGRAVATED [None]
  - CYANOSIS [None]
  - DYSPNOEA [None]
  - GAMMA-GLUTAMYLTRANSFERASE INCREASED [None]
  - METHAEMOGLOBINAEMIA [None]
  - SOMNOLENCE [None]
  - TACHYCARDIA [None]
  - TACHYPNOEA [None]
  - VENTRICULAR EXTRASYSTOLES [None]
